FAERS Safety Report 21396528 (Version 1)
Quarter: 2022Q3

REPORT INFORMATION
  Report Type: Spontaneous
  Country: None (occurrence: FR)
  Receive Date: 20220930
  Receipt Date: 20220930
  Transmission Date: 20221026
  Serious: Yes (Other)
  Sender: FDA-Public Use
  Company Number: FR-B.Braun Medical Inc.-2133354

PATIENT
  Age: 23 Month
  Sex: Female
  Weight: 8.6 kg

DRUGS (6)
  1. ACETAMINOPHEN [Suspect]
     Active Substance: ACETAMINOPHEN
  2. Bionolyte G5 perfuflex (chlorure de?sodium, chlorure de potassium, glu [Concomitant]
  3. Bactrim?(sulfamethoxazole, trimethoprime) [Concomitant]
  4. CEFTRIAXONE SODIUM [Suspect]
     Active Substance: CEFTRIAXONE SODIUM
  5. NYSTATIN [Suspect]
     Active Substance: NYSTATIN
  6. MORPHINE SULFATE [Suspect]
     Active Substance: MORPHINE SULFATE

REACTIONS (4)
  - Hepatic cytolysis [Recovered/Resolved]
  - Prothrombin time ratio decreased [Recovered/Resolved]
  - Incorrect dose administered [Recovered/Resolved]
  - Off label use [Recovered/Resolved]
